FAERS Safety Report 8905226 (Version 1)
Quarter: 2012Q4

REPORT INFORMATION
  Report Type: 
  Country: CA (occurrence: CA)
  Receive Date: 20121111
  Receipt Date: 20121111
  Transmission Date: 20130627
  Serious: Yes (Other)
  Sender: FDA-Public Use
  Company Number: PHMT2007CA00571

PATIENT
  Sex: Female

DRUGS (7)
  1. SANDOSTATIN LAR [Suspect]
     Dosage: 10 mg, every 4 weeks
     Route: 030
     Dates: start: 20051011, end: 20070110
  2. CELEXA [Concomitant]
  3. NEURONTIN [Concomitant]
  4. SYNTHROID [Concomitant]
  5. DDAVP [Concomitant]
  6. ASA [Concomitant]
  7. ACTONEL [Concomitant]

REACTIONS (3)
  - Diabetes mellitus [Recovering/Resolving]
  - Hyperglycaemia [Unknown]
  - Weight decreased [Recovering/Resolving]
